FAERS Safety Report 21796533 (Version 1)
Quarter: 2022Q4

REPORT INFORMATION
  Report Type: Report from Study
  Country: US (occurrence: US)
  Receive Date: 20221229
  Receipt Date: 20221229
  Transmission Date: 20230113
  Serious: No
  Sender: FDA-Public Use
  Company Number: US-ABBVIE-4219928

PATIENT
  Sex: Female

DRUGS (1)
  1. HUMIRA [Suspect]
     Active Substance: ADALIMUMAB
     Indication: Colitis ulcerative
     Dosage: STRENGTH-40 MG
     Route: 058

REACTIONS (4)
  - Fatigue [Unknown]
  - Injection site urticaria [Recovering/Resolving]
  - Dizziness [Recovering/Resolving]
  - Abdominal pain upper [Unknown]
